FAERS Safety Report 4404618-1 (Version None)
Quarter: 2004Q3

REPORT INFORMATION
  Report Type: 
  Country: None (occurrence: None)
  Receive Date: 20040720
  Receipt Date: 20040713
  Transmission Date: 20050211
  Serious: Yes (Disabling)
  Sender: FDA-Public Use
  Company Number: 04P-056-0264627-00

PATIENT
  Age: 38 Year
  Sex: Female

DRUGS (5)
  1. KALETRA [Suspect]
     Dosage: 6 DOSAGE FORMS, 1 IN 1 D, PER ORAL
     Route: 048
     Dates: start: 20040129
  2. ZIDOVUDINE W/LAMIVUDINE [Suspect]
     Dosage: 2 DOSAGE FORMS, 1 IN 2 D, PER ORAL
     Route: 048
     Dates: start: 20010405, end: 20040102
  3. ZIDOVUDINE W/LAMIVUDINE [Suspect]
     Dosage: 2 DOSAGE FORMS, 1 IN 2 D, PER ORAL
     Route: 048
     Dates: start: 20040129
  4. EFAVIRENZ [Suspect]
     Dosage: 1 DOSAGE FORMS, 1 IN 1 D, PER ORAL
     Route: 048
     Dates: start: 20010405, end: 20040102
  5. BUPRENORPHINE [Suspect]
     Dosage: 2 MG, 1 IN 1 D, SUBLINGUAL
     Route: 060

REACTIONS (4)
  - CEREBRAL VENTRICLE DILATATION [None]
  - DRUG EXPOSURE DURING PREGNANCY [None]
  - POLYHYDRAMNIOS [None]
  - ULTRASOUND ABDOMEN ABNORMAL [None]
